FAERS Safety Report 22195765 (Version 1)
Quarter: 2023Q2

REPORT INFORMATION
  Report Type: Spontaneous
  Country: PL (occurrence: None)
  Receive Date: 20230411
  Receipt Date: 20230411
  Transmission Date: 20230721
  Serious: Yes (Other)
  Sender: FDA-Public Use
  Company Number: 2023A078096

PATIENT
  Age: 64 Year
  Sex: Female

DRUGS (9)
  1. FULVESTRANT [Suspect]
     Active Substance: FULVESTRANT
     Indication: Product used for unknown indication
     Dosage: 500 MG500.0MG UNKNOWN
     Route: 030
     Dates: start: 20210609
  2. FASLODEX [Suspect]
     Active Substance: FULVESTRANT
     Indication: Product used for unknown indication
     Dosage: 500 MG500.0MG UNKNOWN
     Dates: start: 20210707
  3. KISQALI [Suspect]
     Active Substance: RIBOCICLIB
     Indication: Product used for unknown indication
     Dosage: UNK
     Dates: start: 20210806
  4. KISQALI [Suspect]
     Active Substance: RIBOCICLIB
     Indication: Product used for unknown indication
     Dosage: 3 DOSAGE FORM, QD (1 X 3 TABL. FOR 21 DAYS)
     Dates: start: 20210707
  5. KISQALI [Suspect]
     Active Substance: RIBOCICLIB
     Indication: Product used for unknown indication
     Dosage: 200 MG, QD (3 TABLET IN THE MORNING FOR 21 DAYS)
     Dates: start: 20210609
  6. TORECAN [Concomitant]
     Active Substance: THIETHYLPERAZINE MALATE
     Indication: Prophylaxis of nausea and vomiting
     Dosage: UNK (2X1)
  7. BACTIGRAS [Concomitant]
     Indication: Product used for unknown indication
     Dosage: UNK (DRESSINGS EXCHANGED EVERY TWO DAYS)
  8. RAMIPRIL [Concomitant]
     Active Substance: RAMIPRIL
     Indication: Product used for unknown indication
     Dosage: 5 MG, QD (0-0-1)
  9. BISOPROLOL [Concomitant]
     Active Substance: BISOPROLOL
     Indication: Product used for unknown indication
     Dosage: 1.25 MG, QD (1-0-0)

REACTIONS (11)
  - Tumour ulceration [Unknown]
  - Leukopenia [Recovered/Resolved]
  - Neutropenia [Recovered/Resolved]
  - Hepatotoxicity [Recovered/Resolved]
  - Alanine aminotransferase increased [Recovered/Resolved]
  - Aspartate aminotransferase increased [Recovered/Resolved]
  - Rash macular [Recovered/Resolved]
  - Blood bilirubin increased [Unknown]
  - Skin lesion [Unknown]
  - Gamma-glutamyltransferase increased [Recovered/Resolved]
  - Pallor [Unknown]

NARRATIVE: CASE EVENT DATE: 20210806
